FAERS Safety Report 9912914 (Version 1)
Quarter: 2014Q1

REPORT INFORMATION
  Report Type: Spontaneous
  Country: GB (occurrence: None)
  Receive Date: 20140214
  Receipt Date: 20140214
  Transmission Date: 20141002
  Serious: Yes (Other)
  Sender: FDA-Public Use
  Company Number: 2014-000325

PATIENT
  Age: 53 Year
  Sex: Female

DRUGS (2)
  1. DORYX (DOXYCYCLINE HYCLATE) PROLONGED-RELEASE TABLET, 200MG [Suspect]
     Dosage: TOTAL?LOT # UNCONFIRMED
     Route: 048
     Dates: start: 201312, end: 201312
  2. MINI-PILL (NORETHISTERONE) [Concomitant]

REACTIONS (9)
  - Suicidal ideation [None]
  - Tremor [None]
  - Aphagia [None]
  - Anxiety [None]
  - Vomiting [None]
  - Malaise [None]
  - Feeling abnormal [None]
  - Activities of daily living impaired [None]
  - Crying [None]
